FAERS Safety Report 16600310 (Version 1)
Quarter: 2019Q3

REPORT INFORMATION
  Report Type: Spontaneous
  Country: US (occurrence: US)
  Receive Date: 20190719
  Receipt Date: 20190719
  Transmission Date: 20191004
  Serious: No
  Sender: FDA-Public Use
  Company Number: US-GLAXOSMITHKLINE-US2019129712

PATIENT
  Sex: Female

DRUGS (1)
  1. FLONASE ALLERGY RELIEF [Suspect]
     Active Substance: FLUTICASONE PROPIONATE
     Indication: PRODUCT USE IN UNAPPROVED INDICATION
     Dosage: UNK

REACTIONS (7)
  - Lacrimation increased [Unknown]
  - Ill-defined disorder [Unknown]
  - Eye pruritus [Unknown]
  - Oropharyngeal discomfort [Unknown]
  - Cough [Unknown]
  - Throat irritation [Unknown]
  - Sneezing [Unknown]
